FAERS Safety Report 22591829 (Version 1)
Quarter: 2023Q2

REPORT INFORMATION
  Report Type: Spontaneous
  Country: US (occurrence: US)
  Receive Date: 20230612
  Receipt Date: 20230612
  Transmission Date: 20230721
  Serious: No
  Sender: FDA-Public Use
  Company Number: US-BIOMARINAP-US-2022-144502

PATIENT

DRUGS (1)
  1. VOXZOGO [Suspect]
     Active Substance: VOSORITIDE
     Indication: Acromesomelic dysplasia
     Dosage: 0.56 MILLIGRAM, QD
     Route: 058
     Dates: start: 20220314

REACTIONS (2)
  - Drug ineffective [Unknown]
  - Off label use [Unknown]
